FAERS Safety Report 16959978 (Version 1)
Quarter: 2019Q4

REPORT INFORMATION
  Report Type: Spontaneous
  Country: US (occurrence: US)
  Receive Date: 20191025
  Receipt Date: 20191025
  Transmission Date: 20200122
  Serious: Yes (Other)
  Sender: FDA-Public Use
  Company Number: US-ROCHE-2443195

PATIENT
  Sex: Female

DRUGS (1)
  1. OCREVUS [Suspect]
     Active Substance: OCRELIZUMAB
     Indication: PRODUCT USED FOR UNKNOWN INDICATION
     Dosage: THIRD INFUSION IN OCTOBER 2019
     Route: 065

REACTIONS (7)
  - Monoplegia [Unknown]
  - Back pain [Unknown]
  - Drug ineffective [Unknown]
  - Vertigo [Unknown]
  - Insomnia [Unknown]
  - Headache [Unknown]
  - Condition aggravated [Unknown]
